FAERS Safety Report 21522249 (Version 2)
Quarter: 2023Q1

REPORT INFORMATION
  Report Type: Report from Study
  Country: US (occurrence: US)
  Receive Date: 20221028
  Receipt Date: 20230226
  Transmission Date: 20230417
  Serious: Yes (Hospitalization, Other)
  Sender: FDA-Public Use
  Company Number: US-ABBVIE-4177242

PATIENT
  Age: 51 Year
  Sex: Male

DRUGS (1)
  1. HUMIRA [Suspect]
     Active Substance: ADALIMUMAB
     Indication: Colitis ulcerative
     Dosage: CITRATE FREE, FORM STRENGTH 40 MILLIGRAMS
     Route: 058

REACTIONS (2)
  - Vascular graft [Recovering/Resolving]
  - Cardiac operation [Recovered/Resolved]

NARRATIVE: CASE EVENT DATE: 20221002
